FAERS Safety Report 17680873 (Version 3)
Quarter: 2020Q2

REPORT INFORMATION
  Report Type: Spontaneous
  Country: IT (occurrence: IT)
  Receive Date: 20200417
  Receipt Date: 20200517
  Transmission Date: 20200714
  Serious: Yes (Hospitalization, Other)
  Sender: FDA-Public Use
  Company Number: PHHY2019IT147860

PATIENT
  Age: 60 Year
  Sex: Male

DRUGS (8)
  1. RITUXIMAB. [Suspect]
     Active Substance: RITUXIMAB
     Indication: PEMPHIGOID
     Dosage: 2 X 1000 MG DOSES (2 WEEKS)
     Route: 041
  2. METHOTREXATE. [Suspect]
     Active Substance: METHOTREXATE
     Indication: PEMPHIGOID
     Dosage: UNK
     Route: 065
  3. RITUXIMAB. [Suspect]
     Active Substance: RITUXIMAB
     Dosage: 2 X 1000 MG DOSES
     Route: 041
  4. PREDNISONE. [Suspect]
     Active Substance: PREDNISONE
     Indication: PEMPHIGOID
     Dosage: 25 MG QD
     Route: 065
  5. PREDNISONE. [Suspect]
     Active Substance: PREDNISONE
     Dosage: 5 MG, QD
     Route: 065
  6. CYCLOSPORINE. [Suspect]
     Active Substance: CYCLOSPORINE
     Indication: PEMPHIGOID
     Dosage: UNK
     Route: 065
  7. PREDNISONE. [Suspect]
     Active Substance: PREDNISONE
     Dosage: 0.5 MG/KG, QD
     Route: 065
  8. DAPSONE. [Suspect]
     Active Substance: DAPSONE
     Indication: PEMPHIGOID
     Dosage: UNK
     Route: 065

REACTIONS (8)
  - Condition aggravated [Recovered/Resolved]
  - Intentional product use issue [Unknown]
  - Osteoporosis [Unknown]
  - Hypertension [Unknown]
  - Treatment failure [Unknown]
  - Off label use [Unknown]
  - Pemphigoid [Recovered/Resolved]
  - Myopathy [Unknown]
